FAERS Safety Report 17183612 (Version 1)
Quarter: 2019Q4

REPORT INFORMATION
  Report Type: Spontaneous
  Country: CA (occurrence: CA)
  Receive Date: 20191220
  Receipt Date: 20191220
  Transmission Date: 20200122
  Serious: Yes (Hospitalization)
  Sender: FDA-Public Use
  Company Number: CA-PFIZER INC-2019549674

PATIENT
  Age: 26 Year
  Sex: Male

DRUGS (1)
  1. PHENYTOIN. [Suspect]
     Active Substance: PHENYTOIN
     Indication: EPILEPSY
     Dosage: UNK
     Route: 030

REACTIONS (7)
  - Conjunctival hyperaemia [Unknown]
  - Toxic epidermal necrolysis [Unknown]
  - Conjunctival oedema [Unknown]
  - Symblepharon [Unknown]
  - Corneal epithelium defect [Unknown]
  - Visual acuity reduced [Unknown]
  - Incorrect route of product administration [Unknown]
